APPROVED DRUG PRODUCT: RISPERIDONE
Active Ingredient: RISPERIDONE
Strength: 1MG
Dosage Form/Route: TABLET;ORAL
Application: A078740 | Product #003
Applicant: WEST WARD PHARMACEUTICALS CORP
Approved: May 29, 2009 | RLD: No | RS: No | Type: DISCN